FAERS Safety Report 23766849 (Version 1)
Quarter: 2024Q2

REPORT INFORMATION
  Report Type: Spontaneous
  Country: US (occurrence: US)
  Receive Date: 20240422
  Receipt Date: 20240422
  Transmission Date: 20240716
  Serious: Yes (Hospitalization, Other)
  Sender: FDA-Public Use
  Company Number: US-NOVITIUMPHARMA-2024USNVP00562

PATIENT
  Age: 53 Year
  Sex: Female

DRUGS (2)
  1. SELEGILINE [Suspect]
     Active Substance: SELEGILINE
     Indication: Product used for unknown indication
  2. PHENETHYLAMINE [Concomitant]
     Active Substance: PHENETHYLAMINE
     Indication: Product used for unknown indication

REACTIONS (4)
  - Subarachnoid haemorrhage [Unknown]
  - Hypertensive crisis [Unknown]
  - Intentional product misuse [Unknown]
  - Drug interaction [Unknown]
